FAERS Safety Report 10386595 (Version 1)
Quarter: 2014Q1

REPORT INFORMATION
  Report Type: Spontaneous
  Country: US (occurrence: None)
  Receive Date: 20140306
  Receipt Date: 20140306
  Transmission Date: 20141002
  Serious: Yes (Other)
  Sender: FDA-Public Use
  Company Number: 163-21880-13120874

PATIENT
  Age: 76 Year
  Sex: Female
  Weight: 89 kg

DRUGS (12)
  1. REVLIMID (LENALIDOMIDE) 10 MILLIGRAM, CAPSULES) [Suspect]
     Indication: MYELODYSPLASTIC SYNDROME
     Route: 048
     Dates: start: 20131105
  2. ASA (ACETYLSALICYLIC ACID) [Concomitant]
  3. COZAAR [Concomitant]
  4. HCTZ [Concomitant]
  5. PLAQUENIL [Concomitant]
  6. LANTUS (INSULIN GLARGINE) [Concomitant]
  7. MECLIZINE [Concomitant]
  8. METFORMIN (METFORMIN) [Concomitant]
  9. SIMVASTATIN (SIMVASTATIN) [Concomitant]
  10. TERAZOSIN [Concomitant]
  11. VITAMIN B12 (CYANOCOBALAMIN) [Concomitant]
  12. GLYBURIDE (GLIBENCLAMIDE) [Concomitant]

REACTIONS (2)
  - Platelet count decreased [None]
  - White blood cell count decreased [None]
